FAERS Safety Report 8809959 (Version 3)
Quarter: 2014Q1

REPORT INFORMATION
  Report Type: Spontaneous
  Country: US (occurrence: US)
  Receive Date: 20120926
  Receipt Date: 20140123
  Transmission Date: 20141002
  Serious: Yes (Hospitalization, Disabling, Other)
  Sender: FDA-Public Use
  Company Number: US-009507513-1209USA007691

PATIENT
  Sex: Female

DRUGS (8)
  1. FOSAMAX [Suspect]
     Indication: OSTEOPOROSIS
     Dosage: 70 MG, QW
     Route: 048
     Dates: end: 2012
  2. BONIVA [Suspect]
     Indication: OSTEOPOROSIS
     Dosage: 150 MG, UNK
     Dates: end: 2012
  3. CALCIUM (UNSPECIFIED) [Concomitant]
  4. VITAMIN E [Concomitant]
  5. VITAMIN D (UNSPECIFIED) [Concomitant]
  6. ASCORBIC ACID [Concomitant]
  7. PYRIDOXINE [Concomitant]
  8. VITAMINS (UNSPECIFIED) [Concomitant]

REACTIONS (38)
  - Hip fracture [Unknown]
  - Fall [Unknown]
  - Open reduction of fracture [Unknown]
  - Cerebrovascular accident [Unknown]
  - Acute respiratory failure [Unknown]
  - Squamous cell carcinoma [Unknown]
  - Basal cell carcinoma [Unknown]
  - Sepsis [Unknown]
  - Septic shock [Unknown]
  - Head injury [Unknown]
  - Multiple-drug resistance [Unknown]
  - Fall [Unknown]
  - Confusional state [Unknown]
  - Asthenia [Unknown]
  - Stress cardiomyopathy [Unknown]
  - Pneumonia staphylococcal [Unknown]
  - Dementia [Unknown]
  - Delirium [Unknown]
  - Adverse drug reaction [Unknown]
  - Arteriosclerosis [Unknown]
  - Cerebrovascular disorder [Unknown]
  - Atrial fibrillation [Unknown]
  - Hypoxia [Unknown]
  - Tracheostomy [Unknown]
  - Tachycardia [Unknown]
  - Respiratory disorder [Unknown]
  - Arthralgia [Unknown]
  - Enterococcal infection [Unknown]
  - Cognitive disorder [Unknown]
  - Sciatica [Unknown]
  - Endodontic procedure [Unknown]
  - Lumbar radiculopathy [Unknown]
  - Hypertension [Unknown]
  - Appendicectomy [Unknown]
  - Hysterectomy [Unknown]
  - Adverse event [Unknown]
  - Drug hypersensitivity [Unknown]
  - Drug hypersensitivity [Unknown]
